FAERS Safety Report 15101513 (Version 3)
Quarter: 2018Q3

REPORT INFORMATION
  Report Type: Spontaneous
  Country: JP (occurrence: JP)
  Receive Date: 20180703
  Receipt Date: 20180815
  Transmission Date: 20181010
  Serious: Yes (Hospitalization)
  Sender: FDA-Public Use
  Company Number: JP-GLAXOSMITHKLINE-JP2018JPN114819

PATIENT
  Age: 81 Year
  Sex: Female

DRUGS (14)
  1. TICLOPIDINE HYDROCHLORIDE. [Concomitant]
     Active Substance: TICLOPIDINE HYDROCHLORIDE
     Dosage: 100 MG, BID(AFTER BREAKFAST,AFTER DINNER)
  2. MAGNESIUM OXIDE. [Concomitant]
     Active Substance: MAGNESIUM OXIDE
     Dosage: 250 MG, QD(BEFORE BEDTIME)
  3. VALSARTAN. [Concomitant]
     Active Substance: VALSARTAN
     Dosage: 20 MG, QD(AFTER BREAKFAST)
  4. MYSLEE [Concomitant]
     Active Substance: ZOLPIDEM TARTRATE
     Dosage: 5 MG, QD(BEFORE BEDTIME)
  5. BETANIS [Concomitant]
     Active Substance: MIRABEGRON
     Dosage: 25 MG, QD(AFTER BREAKFAST)
  6. CALONAL [Concomitant]
     Active Substance: ACETAMINOPHEN
     Dosage: 400 MG, PRN
  7. GLIMICRON [Concomitant]
     Active Substance: GLICLAZIDE
     Dosage: 40 MG, QD(AFTER BREAKFAST)
  8. SENNOSIDE [Concomitant]
     Active Substance: SENNOSIDES
     Dosage: 24 MG, QD(BEFORE BEDTIME)
  9. EBRANTIL CAPSULES [Concomitant]
     Dosage: 15 MG, BID(AFTER BREAKFAST,AFTER DINNER)
  10. MEPOLIZUMAB [Suspect]
     Active Substance: MEPOLIZUMAB
     Indication: ASTHMA
     Dosage: UNK
     Route: 058
  11. BAYASPIRIN [Concomitant]
     Active Substance: ASPIRIN
     Dosage: 100 MG, QD(AFTER BREAKFAST)
  12. SUPLATAST TOSILATE [Concomitant]
     Active Substance: SUPLATAST TOSILATE
     Dosage: 100 MG, TID(AFTER EACH MEAL)
  13. GASLON N OD [Concomitant]
     Dosage: 4 MG, QD(AFTER DINNER)
  14. DEPAS (ETIZOLAM) [Concomitant]
     Dosage: 1 MG, QD(BEFORE BEDTIME)

REACTIONS (5)
  - Fracture [Recovered/Resolved]
  - Fall [Unknown]
  - Pain [Unknown]
  - Dizziness [Recovered/Resolved]
  - Bone contusion [Unknown]

NARRATIVE: CASE EVENT DATE: 20180621
